FAERS Safety Report 9411638 (Version 1)
Quarter: 2013Q3

REPORT INFORMATION
  Report Type: Spontaneous
  Country: US (occurrence: US)
  Receive Date: 20130722
  Receipt Date: 20130722
  Transmission Date: 20140515
  Serious: Yes (Hospitalization)
  Sender: FDA-Public Use
  Company Number: US-SANOFI-AVENTIS-2013SA069227

PATIENT
  Age: 73 Year
  Sex: Male
  Weight: 108 kg

DRUGS (9)
  1. LANTUS SOLOSTAR [Suspect]
     Indication: TYPE 2 DIABETES MELLITUS
     Dosage: TAKEN FROM: MORE THAN 6 MONTHS DOSE:32 UNIT(S)
     Route: 058
     Dates: start: 20130112
  2. SOLOSTAR [Suspect]
     Indication: TYPE 2 DIABETES MELLITUS
     Dosage: TAKEN FROM: MORE THAN 6 MONTHS
     Dates: start: 20130112
  3. FENOFIBRATE [Concomitant]
  4. ASPIRIN [Concomitant]
  5. PRAVASTATIN [Concomitant]
  6. LISINOPRIL W/HYDROCHLOROTHIAZIDE [Concomitant]
     Dosage: DOSE: 20-25 MG
  7. MULTIPLE VITAMINS [Concomitant]
  8. METFORMIN HYDROCHLORIDE/PIOGLITAZONE HYDROCHLORIDE [Concomitant]
  9. METOPROLOL TARTRATE [Concomitant]

REACTIONS (2)
  - Pulmonary embolism [Unknown]
  - Glycosylated haemoglobin increased [Unknown]
